FAERS Safety Report 14926523 (Version 9)
Quarter: 2019Q3

REPORT INFORMATION
  Report Type: Spontaneous
  Country: JP (occurrence: JP)
  Receive Date: 20180523
  Receipt Date: 20190828
  Transmission Date: 20191004
  Serious: Yes (Hospitalization, Other)
  Sender: FDA-Public Use
  Company Number: JP-009507513-1805JPN000097J

PATIENT
  Age: 44 Year
  Sex: Male

DRUGS (9)
  1. SAWACILLIN [Concomitant]
     Active Substance: AMOXICILLIN
     Indication: PRODUCT USED FOR UNKNOWN INDICATION
     Dosage: 2 DF, BID
     Route: 048
     Dates: start: 20180405, end: 20180406
  2. NAIXAN [Concomitant]
     Active Substance: NAPROXEN SODIUM
     Indication: PYREXIA
     Dosage: 3 DF, TID
     Route: 048
     Dates: start: 20180416, end: 20180516
  3. PANVITAN [Concomitant]
     Active Substance: VITAMINS
     Indication: PROPHYLAXIS
     Dosage: 1 G, QD
     Route: 048
     Dates: start: 20180409
  4. KEYTRUDA [Suspect]
     Active Substance: PEMBROLIZUMAB
     Indication: NON-SMALL CELL LUNG CANCER
     Dosage: 200 MILLIGRAM, Q3W
     Route: 041
     Dates: start: 20180416, end: 20180416
  5. AUGMENTIN [Concomitant]
     Active Substance: AMOXICILLIN\CLAVULANATE POTASSIUM
     Indication: PRODUCT USED FOR UNKNOWN INDICATION
     Dosage: 2 DF, BID
     Route: 048
     Dates: start: 20180405, end: 20180406
  6. LANSOPRAZOLE. [Concomitant]
     Active Substance: LANSOPRAZOLE
     Indication: PROPHYLAXIS
     Dosage: 1 DF, QD
     Route: 048
     Dates: start: 20180416, end: 20180516
  7. COCARL [Concomitant]
     Active Substance: ACETAMINOPHEN
     Indication: PYREXIA
     Dosage: UNK UNK, PRN
     Route: 048
     Dates: start: 20180330, end: 20180430
  8. SEKICODE [Concomitant]
     Indication: ANTITUSSIVE THERAPY
     Dosage: UNK UNK, PRN
     Route: 048
     Dates: start: 20180418
  9. ENEVO [Concomitant]
     Indication: DECREASED APPETITE
     Dosage: 1 DF, QD
     Route: 048
     Dates: start: 20180423, end: 20180425

REACTIONS (9)
  - Muscular weakness [Recovered/Resolved]
  - Arthralgia [Unknown]
  - Hypoaesthesia [Unknown]
  - Grip strength decreased [Recovering/Resolving]
  - Alanine aminotransferase increased [Recovered/Resolved]
  - Pruritus [Unknown]
  - Gamma-glutamyltransferase increased [Recovered/Resolved]
  - Decreased activity [Recovering/Resolving]
  - Tumour pseudoprogression [Recovered/Resolved]

NARRATIVE: CASE EVENT DATE: 20180420
